FAERS Safety Report 17314112 (Version 1)
Quarter: 2020Q1

REPORT INFORMATION
  Report Type: Report from Study
  Country: None (occurrence: NZ)
  Receive Date: 20200124
  Receipt Date: 20200124
  Transmission Date: 20200409
  Serious: Yes (Hospitalization, Other)
  Sender: FDA-Public Use
  Company Number: NZ-ABBVIE-20K-118-3244483-00

PATIENT
  Age: 65 Year
  Weight: 79 kg

DRUGS (1)
  1. HUMIRA [Suspect]
     Active Substance: ADALIMUMAB
     Indication: CROHN^S DISEASE
     Route: 058

REACTIONS (5)
  - Small intestinal obstruction [Unknown]
  - Gastrointestinal stenosis [Unknown]
  - Crohn^s disease [Unknown]
  - Colectomy [Unknown]
  - Drug level decreased [Unknown]

NARRATIVE: CASE EVENT DATE: 2005
